FAERS Safety Report 7744289-X (Version None)
Quarter: 2011Q3

REPORT INFORMATION
  Report Type: 
  Country: None (occurrence: None)
  Receive Date: 20110912
  Receipt Date: 20110323
  Transmission Date: 20111222
  Serious: No
  Sender: FDA-Public Use
  Company Number: US-BAYER-2011-025804

PATIENT
  Age: 35 Year
  Sex: Female

DRUGS (2)
  1. MIRENA [Suspect]
     Indication: MENORRHAGIA
  2. MIRENA [Suspect]
     Indication: CONTRACEPTION
     Dosage: 20 MCG/24HR, CONT
     Route: 015
     Dates: start: 20100825, end: 20110225

REACTIONS (6)
  - BLOOD IRON DECREASED [None]
  - INSOMNIA [None]
  - CONTUSION [None]
  - MENORRHAGIA [None]
  - DYSMENORRHOEA [None]
  - MIDDLE INSOMNIA [None]
